FAERS Safety Report 19676220 (Version 1)
Quarter: 2021Q3

REPORT INFORMATION
  Report Type: Spontaneous
  Country: US (occurrence: US)
  Receive Date: 20210809
  Receipt Date: 20210809
  Transmission Date: 20211014
  Serious: Yes (Other)
  Sender: FDA-Public Use
  Company Number: US-PFIZER INC-2021116252

PATIENT
  Age: 68 Year
  Sex: Male

DRUGS (1)
  1. VYNDAMAX [Suspect]
     Active Substance: TAFAMIDIS
     Indication: AMYLOIDOSIS SENILE
     Dosage: 61 MG, ONCE DAILY
     Route: 048

REACTIONS (14)
  - Carpal tunnel syndrome [Unknown]
  - Cardiac failure congestive [Unknown]
  - Pain [Unknown]
  - Neuropathy peripheral [Unknown]
  - Scar [Unknown]
  - Gait disturbance [Unknown]
  - Hemiplegia [Unknown]
  - Memory impairment [Unknown]
  - Aortic stenosis [Unknown]
  - Joint adhesion [Unknown]
  - Discomfort [Unknown]
  - Cerebrovascular accident [Unknown]
  - Joint range of motion decreased [Not Recovered/Not Resolved]
  - Temperature intolerance [Unknown]
